FAERS Safety Report 8866567 (Version 1)
Quarter: 2012Q4

REPORT INFORMATION
  Report Type: 
  Country: US (occurrence: US)
  Receive Date: 20121025
  Receipt Date: 20121025
  Transmission Date: 20130627
  Serious: No
  Sender: FDA-Public Use
  Company Number: US-AMGEN-USASP2012012917

PATIENT
  Sex: Female

DRUGS (15)
  1. ENBREL [Suspect]
     Indication: PRODUCT USED FOR UNKNOWN INDICATION
     Dosage: 50 mg, qwk
     Route: 058
  2. SERTRALINE [Concomitant]
     Dosage: 25 mg, UNK
     Route: 048
  3. METHOTREXATE [Concomitant]
     Dosage: 2.5 mg, UNK
     Route: 048
  4. PREDNISONE [Concomitant]
     Dosage: 1 mg, UNK
     Route: 048
  5. RECLAST [Concomitant]
     Dosage: UNK
  6. CLONAZEPAM [Concomitant]
     Dosage: 1 mg, UNK
     Route: 048
  7. FENTANYL [Concomitant]
     Dosage: 100 mug, UNK
  8. GABAPENTIN [Concomitant]
     Dosage: 400 mg, UNK
     Route: 048
  9. SAVELLA [Concomitant]
     Dosage: 25 mg, UNK
     Route: 048
  10. MULTIVITAMIN                       /00097801/ [Concomitant]
     Dosage: UNK
     Route: 048
  11. POTASSIUM [Concomitant]
     Dosage: 75 mg, UNK
     Route: 048
  12. HYDROCODONE W/APAP                 /00607101/ [Concomitant]
     Dosage: 7.5 UNK, UNK
     Route: 048
  13. HYDROCODONE W/APAP                 /00607101/ [Concomitant]
     Dosage: 300 UNK, UNK
     Route: 048
  14. FOLIC ACID [Concomitant]
     Dosage: UNK
     Route: 048
  15. CALCIUM +D                         /00188401/ [Concomitant]
     Dosage: UNK
     Route: 048

REACTIONS (1)
  - Pleurisy [Unknown]
